FAERS Safety Report 8477374-8 (Version None)
Quarter: 2012Q2

REPORT INFORMATION
  Report Type: 
  Country: None (occurrence: None)
  Receive Date: 20120629
  Receipt Date: 20120622
  Transmission Date: 20120825
  Serious: No
  Sender: FDA-Public Use
  Company Number: US-MUTUAL PHARMACEUTICAL COMPANY, INC.-MTCD20120144

PATIENT
  Sex: Female

DRUGS (8)
  1. METOCLOPRAMIDE [Suspect]
     Indication: DYSPEPSIA
  2. REGLAN [Suspect]
     Indication: NAUSEA
     Route: 065
  3. REGLAN [Suspect]
     Indication: ABDOMINAL DISTENSION
  4. METOCLOPRAMIDE [Suspect]
     Indication: ABDOMINAL DISTENSION
  5. REGLAN [Suspect]
     Indication: ABDOMINAL PAIN
  6. REGLAN [Suspect]
     Indication: DYSPEPSIA
  7. METOCLOPRAMIDE [Suspect]
     Indication: ABDOMINAL PAIN
  8. METOCLOPRAMIDE [Suspect]
     Indication: NAUSEA
     Route: 065

REACTIONS (2)
  - TARDIVE DYSKINESIA [None]
  - UNEVALUABLE EVENT [None]
